FAERS Safety Report 20874985 (Version 1)
Quarter: 2022Q2

REPORT INFORMATION
  Report Type: Spontaneous
  Country: FI (occurrence: FI)
  Receive Date: 20220526
  Receipt Date: 20220526
  Transmission Date: 20220721
  Serious: Yes (Death)
  Sender: FDA-Public Use
  Company Number: None

PATIENT
  Age: 81 Year
  Sex: Male

DRUGS (10)
  1. MEMANTINE [Suspect]
     Active Substance: MEMANTINE
     Indication: Product used for unknown indication
     Dosage: 20 MILLIGRAM DAILY; 20,MG,DAILY
     Route: 065
  2. AMOXICILLIN\CLAVULANATE POTASSIUM [Suspect]
     Active Substance: AMOXICILLIN\CLAVULANATE POTASSIUM
     Indication: Chronic sinusitis
     Dosage: 3 DOSAGE FORMS DAILY; 3,DF,DAILY,DURATION 7DAYS
     Route: 048
     Dates: start: 20211111
  3. DIGOXIN ORION SEMI [Concomitant]
     Dosage: 125 MICROGRAM DAILY; 125,UG,DAILY
  4. CARDACE [Concomitant]
     Dosage: 2.5 MILLIGRAM DAILY; 2.5,MG,DAILY
  5. BISOPROLOL [Concomitant]
     Active Substance: BISOPROLOL
     Dosage: 10 MILLIGRAM DAILY; 10,MG,DAILY
  6. FUROSEMIDE [Concomitant]
     Active Substance: FUROSEMIDE
     Dosage: 80 MILLIGRAM DAILY; 80,MG,DAILY
  7. ELIQUIS [Concomitant]
     Active Substance: APIXABAN
     Dosage: 10 MILLIGRAM DAILY; 10,MG,DAILY
  8. QUETIAPINE FUMARATE [Concomitant]
     Active Substance: QUETIAPINE FUMARATE
     Dosage: 25 MILLIGRAM DAILY; 25,MG,DAILY
  9. PANADOL [Concomitant]
     Active Substance: ACETAMINOPHEN
  10. MELATONIN [Concomitant]
     Active Substance: MELATONIN
     Dosage: 3 MILLIGRAM DAILY; 3,MG,DAILY

REACTIONS (6)
  - Purpura [Fatal]
  - Hepatic necrosis [Fatal]
  - Hepatic failure [Fatal]
  - Hepatic infiltration eosinophilic [Fatal]
  - Drug-induced liver injury [Fatal]
  - Hepatitis cholestatic [Fatal]

NARRATIVE: CASE EVENT DATE: 20211220
